FAERS Safety Report 25070418 (Version 1)
Quarter: 2025Q1

REPORT INFORMATION
  Report Type: Spontaneous
  Country: US (occurrence: None)
  Receive Date: 20250312
  Receipt Date: 20250312
  Transmission Date: 20250408
  Serious: Yes (Other)
  Sender: FDA-CTU
  Company Number: None

PATIENT
  Sex: Female

DRUGS (1)
  1. BOTOX [Suspect]
     Active Substance: ONABOTULINUMTOXINA
     Indication: Skin wrinkling
     Dates: start: 20241203, end: 20241220

REACTIONS (5)
  - Product storage error [None]
  - Product contamination [None]
  - Wrong technique in product usage process [None]
  - Product label issue [None]
  - Product sterility issue [None]

NARRATIVE: CASE EVENT DATE: 20241203
